FAERS Safety Report 9419956 (Version 1)
Quarter: 2013Q3

REPORT INFORMATION
  Report Type: Spontaneous
  Country: US (occurrence: None)
  Receive Date: 20130724
  Receipt Date: 20130724
  Transmission Date: 20140515
  Serious: No
  Sender: FDA-Public Use
  Company Number: None

PATIENT
  Age: 60 Year
  Sex: Female
  Weight: 66.4 kg

DRUGS (1)
  1. AZITHROMYCIN [Suspect]
     Indication: BRONCHITIS
     Dosage: 2 TAB, 1 TAB DAY 1, DAY 2-5 ORALLY
     Route: 048
     Dates: start: 20130215

REACTIONS (5)
  - Colitis ulcerative [None]
  - Abdominal pain [None]
  - Constipation [None]
  - Diarrhoea [None]
  - Rectal haemorrhage [None]
